FAERS Safety Report 4331226-3 (Version None)
Quarter: 2004Q2

REPORT INFORMATION
  Report Type: 
  Country: None (occurrence: None)
  Receive Date: 20040402
  Receipt Date: 20040402
  Transmission Date: 20050107
  Serious: Yes (Death, Hospitalization)
  Sender: FDA-Public Use
  Company Number: None

PATIENT
  Age: 43 Year
  Sex: Male
  Weight: 134 kg

DRUGS (7)
  1. CYTARABINE [Suspect]
     Indication: ACUTE MYELOID LEUKAEMIA
     Dosage: 258 MG 7 DAYS INTRAVENOUS
     Route: 042
     Dates: start: 20031231, end: 20040106
  2. VP-16 [Suspect]
     Indication: ACUTE MYELOID LEUKAEMIA
     Dosage: 258MG/232 3 DAYS /3D INTRAVENOUS
     Route: 042
     Dates: start: 20031231, end: 20040102
  3. MULTIPLE IV ANTIBIOTICS [Concomitant]
  4. IV VASOPRESSORS [Concomitant]
  5. IV ELECTROLYTES [Concomitant]
  6. DAUNORUBICIN [Suspect]
  7. DAUNORUBICIN [Suspect]

REACTIONS (5)
  - HAEMODIALYSIS [None]
  - HEART RATE DECREASED [None]
  - HYPOTENSION [None]
  - RENAL FAILURE ACUTE [None]
  - RESPIRATORY FAILURE [None]
